FAERS Safety Report 4463075-X (Version None)
Quarter: 2004Q3

REPORT INFORMATION
  Report Type: 
  Country: None (occurrence: None)
  Receive Date: 20040928
  Receipt Date: 20040921
  Transmission Date: 20050211
  Serious: Yes (Death)
  Sender: FDA-Public Use
  Company Number: 163-20785-04080397

PATIENT
  Age: 61 Year
  Sex: Male

DRUGS (2)
  1. THALOMID [Suspect]
     Indication: METASTASES TO LIVER
     Dosage: 100 MG, DAILY, ORAL
     Route: 048
     Dates: start: 20031107, end: 20040506
  2. THALOMID [Suspect]
     Indication: RENAL CELL CARCINOMA STAGE UNSPECIFIED
     Dosage: 100 MG, DAILY, ORAL
     Route: 048
     Dates: start: 20031107, end: 20040506

REACTIONS (4)
  - HEPATIC FAILURE [None]
  - MALIGNANT NEOPLASM PROGRESSION [None]
  - RENAL CELL CARCINOMA STAGE UNSPECIFIED [None]
  - RESPIRATORY ARREST [None]
